FAERS Safety Report 20902263 (Version 1)
Quarter: 2022Q2

REPORT INFORMATION
  Report Type: Spontaneous
  Country: ES (occurrence: ES)
  Receive Date: 20220601
  Receipt Date: 20220601
  Transmission Date: 20220721
  Serious: Yes (Other)
  Sender: FDA-Public Use
  Company Number: None

PATIENT
  Age: 65 Year
  Sex: Male

DRUGS (6)
  1. IMRALDI [Suspect]
     Active Substance: ADALIMUMAB
     Indication: Colitis ulcerative
     Dosage: ONE PRE-FILLED PEN OF 0.8 ML
     Route: 058
     Dates: start: 20220111, end: 20220315
  2. SALAZOPYRINE [Concomitant]
     Active Substance: SULFASALAZINE
     Indication: Colitis ulcerative
     Dosage: 50 TABLETS
     Route: 048
     Dates: start: 20120216
  3. MOMETASONE FUROATE [Concomitant]
     Active Substance: MOMETASONE FUROATE
     Indication: Product used for unknown indication
     Dosage: SUSPENSION FOR SPRAYING, 18 GRAM (140 SPRAYS), SUSPENSION
     Route: 045
     Dates: start: 20201216
  4. ATORVASTATIN CALCIUM [Concomitant]
     Active Substance: ATORVASTATIN CALCIUM
     Indication: Hyperlipidaemia
     Dosage: 28 TABLETS, FILM-COATED TABLET
     Route: 048
     Dates: start: 20201231
  5. OMEPRAZOL GOBENS [Concomitant]
     Indication: Product used for unknown indication
     Dosage: 28 CAPSULES (BLISTER PVCPVDC), GASTRO-RESISTANT CAPSULE
     Route: 048
     Dates: start: 20130611
  6. PENTASA [Concomitant]
     Active Substance: MESALAMINE
     Indication: Colitis ulcerative
     Dosage: 100 SACHETS, PROLONGED RELEASE GRANULES
     Route: 048
     Dates: start: 20180821

REACTIONS (2)
  - Eosinophilia [Unknown]
  - Eczema [Recovered/Resolved]

NARRATIVE: CASE EVENT DATE: 20220301
